FAERS Safety Report 5376923-6 (Version None)
Quarter: 2007Q3

REPORT INFORMATION
  Report Type: 
  Country: None (occurrence: None)
  Receive Date: 20070703
  Receipt Date: 20070627
  Transmission Date: 20080115
  Serious: Yes (Death, Hospitalization, Disabling)
  Sender: FDA-Public Use
  Company Number: JP-AVENTIS-200711688JP

PATIENT
  Age: 44 Year
  Sex: Male

DRUGS (2)
  1. TAXOTERE [Suspect]
     Indication: GASTRIC CANCER
     Dosage: DOSE: 60 MG/BODY
     Route: 041
  2. TS-1 [Concomitant]
     Indication: GASTRIC CANCER
     Dosage: DOSE: 120 MG/BODY

REACTIONS (1)
  - PULMONARY EMBOLISM [None]
